FAERS Safety Report 6843681-5 (Version None)
Quarter: 2010Q3

REPORT INFORMATION
  Report Type: 
  Country: None (occurrence: None)
  Receive Date: 20100712
  Receipt Date: 20100624
  Transmission Date: 20110219
  Serious: Yes (Other)
  Sender: FDA-Public Use
  Company Number: 632213

PATIENT
  Sex: Male

DRUGS (3)
  1. OXALIPLATIN [Suspect]
  2. AZATHIOPRINE [Suspect]
  3. CAPECITABINE [Suspect]

REACTIONS (3)
  - CHEST PAIN [None]
  - DRUG INTERACTION [None]
  - THROMBOCYTOPENIA [None]
